FAERS Safety Report 23065855 (Version 2)
Quarter: 2023Q4

REPORT INFORMATION
  Report Type: Spontaneous
  Country: NO (occurrence: NO)
  Receive Date: 20231014
  Receipt Date: 20231019
  Transmission Date: 20240110
  Serious: Yes (Other)
  Sender: FDA-Public Use
  Company Number: None

PATIENT
  Age: 16 Year
  Sex: Female

DRUGS (2)
  1. GLIVEC [Suspect]
     Active Substance: IMATINIB MESYLATE
     Indication: Lymphocytic leukaemia
     Dosage: EVERY 24 DAYS, 300 MG + 225 MG
     Route: 065
     Dates: start: 20230818, end: 20230901
  2. GLIVEC [Suspect]
     Active Substance: IMATINIB MESYLATE
     Dosage: IMATINIB WAS PAUSED FROM 01/SEP/2023 UNTIL 05/SEP/2023, THEN RE-STARTED AT A LOWER DOSE; 200 MG X 2,
     Route: 065
     Dates: start: 20230905, end: 20230913

REACTIONS (4)
  - Hypoalbuminaemia [Recovered/Resolved]
  - Ascites [Unknown]
  - Pleural effusion [Unknown]
  - Oedema [Unknown]

NARRATIVE: CASE EVENT DATE: 20230801
